FAERS Safety Report 9473547 (Version 1)
Quarter: 2013Q3

REPORT INFORMATION
  Report Type: Spontaneous
  Country: US (occurrence: US)
  Receive Date: 20130823
  Receipt Date: 20130823
  Transmission Date: 20140515
  Serious: No
  Sender: FDA-Public Use
  Company Number: US-GALDERMA-US13001680

PATIENT
  Age: 64 Year
  Sex: Female

DRUGS (5)
  1. METROGEL (METRONIDAZOLE) GEL, 1% [Suspect]
     Indication: ROSACEA
     Dosage: 1%
     Route: 061
     Dates: start: 2005
  2. CETAPHIL DAILY FACIAL MOISTURIZER SPF15 [Suspect]
     Indication: DRY SKIN PROPHYLAXIS
     Route: 061
     Dates: start: 201205
  3. RETIN A [Suspect]
     Indication: ACNE
     Dosage: 0.25%
     Route: 061
     Dates: start: 1975
  4. CETAPHIL GENTLE CLEANSING BAR [Concomitant]
     Indication: THERAPEUTIC SKIN CARE TOPICAL
     Route: 061
     Dates: start: 1988
  5. CETAPHIL GENTLE SKIN CLEANSER [Concomitant]
     Indication: THERAPEUTIC SKIN CARE TOPICAL
     Route: 061
     Dates: start: 1988

REACTIONS (1)
  - Dry skin [Not Recovered/Not Resolved]
